FAERS Safety Report 17308847 (Version 1)
Quarter: 2020Q1

REPORT INFORMATION
  Report Type: Spontaneous
  Country: CN (occurrence: CN)
  Receive Date: 20200123
  Receipt Date: 20200123
  Transmission Date: 20200409
  Serious: Yes (Hospitalization)
  Sender: FDA-Public Use
  Company Number: CN-PFIZER INC-2020030397

PATIENT
  Age: 63 Year
  Sex: Male
  Weight: 61 kg

DRUGS (4)
  1. CYTOSAR [Suspect]
     Active Substance: CYTARABINE
     Indication: ACUTE MYELOID LEUKAEMIA
     Dosage: 150 MG, CYCLIC DAILY D1-7
     Route: 041
     Dates: start: 20191116, end: 20191122
  2. ZAVEDOS [Suspect]
     Active Substance: IDARUBICIN
     Indication: ACUTE MYELOID LEUKAEMIA
     Dosage: 20 MG, CYCLIC D1-2
     Route: 041
     Dates: start: 20191116, end: 20191217
  3. RHG-CSF [Concomitant]
     Indication: WHITE BLOOD CELL COUNT DECREASED
     Dosage: 300 UG, 1X/DAY
     Route: 058
     Dates: start: 20191116, end: 20191116
  4. ZAVEDOS [Suspect]
     Active Substance: IDARUBICIN
     Dosage: 10 MG, CYCLIC D3

REACTIONS (3)
  - Alanine aminotransferase increased [Recovering/Resolving]
  - White blood cell count increased [Recovering/Resolving]
  - Aspartate aminotransferase increased [Recovering/Resolving]

NARRATIVE: CASE EVENT DATE: 2019
